FAERS Safety Report 11788373 (Version 2)
Quarter: 2015Q4

REPORT INFORMATION
  Report Type: Spontaneous
  Country: GB (occurrence: GB)
  Receive Date: 20151201
  Receipt Date: 20151222
  Transmission Date: 20160305
  Serious: Yes (Hospitalization, Disabling)
  Sender: FDA-Public Use
  Company Number: GB-ACCORD-035698

PATIENT
  Age: 26 Year
  Sex: Female
  Weight: 64 kg

DRUGS (8)
  1. BACLOFEN. [Concomitant]
     Active Substance: BACLOFEN
     Dosage: HALF A TABLET UP TO 3 TIMES A DAY.
     Dates: start: 20150827, end: 20150924
  2. DIAZEPAM. [Concomitant]
     Active Substance: DIAZEPAM
     Dosage: USE FOR SHORT PERIODS AT LOWEST DOSE THAT CAN CONTROL SYMPTOMS.
     Dates: start: 20151014
  3. TRAMADOL. [Concomitant]
     Active Substance: TRAMADOL
     Dates: start: 20151006, end: 20151105
  4. PROPRANOLOL [Concomitant]
     Active Substance: PROPRANOLOL\PROPRANOLOL HYDROCHLORIDE
     Dates: start: 20150924, end: 20151022
  5. PARACETAMOL [Concomitant]
     Active Substance: ACETAMINOPHEN
     Dosage: EVERY FOUR TO SIX HOURS.
     Dates: start: 20151014
  6. GABAPENTIN. [Concomitant]
     Active Substance: GABAPENTIN
     Dates: start: 20150923, end: 20151021
  7. CODEINE [Concomitant]
     Active Substance: CODEINE
     Dosage: TAKE ONE-TWO FOUR TIMES A DAY.
     Dates: start: 20150923, end: 20151006
  8. AMITRIPTYLINE [Suspect]
     Active Substance: AMITRIPTYLINE
     Indication: PAIN
     Dates: start: 20150701

REACTIONS (3)
  - Paralysis [Recovering/Resolving]
  - Paraesthesia [Recovering/Resolving]
  - Off label use [Unknown]

NARRATIVE: CASE EVENT DATE: 20150803
